FAERS Safety Report 8765711 (Version 1)
Quarter: 2012Q4

REPORT INFORMATION
  Report Type: 
  Country: US (occurrence: US)
  Receive Date: 20120904
  Receipt Date: 20120904
  Transmission Date: 20130627
  Serious: No
  Sender: FDA-Public Use
  Company Number: US-PFIZER INC-2012213975

PATIENT
  Age: 9 Year
  Sex: Male
  Weight: 27.7 kg

DRUGS (1)
  1. GENOTROPIN MQ [Suspect]
     Indication: GROWTH HORMONE DEFICIENCY
     Dosage: 1.2 mg, 1x/day
     Dates: start: 201208

REACTIONS (1)
  - Injection site pain [Not Recovered/Not Resolved]
